FAERS Safety Report 4629526-2 (Version None)
Quarter: 2005Q2

REPORT INFORMATION
  Report Type: 
  Country: None (occurrence: None)
  Receive Date: 20050405
  Receipt Date: 20050323
  Transmission Date: 20051028
  Serious: Yes (Other)
  Sender: FDA-Public Use
  Company Number: 200510835BCC

PATIENT
  Age: 48 Year
  Sex: Male
  Weight: 108.8633 kg

DRUGS (8)
  1. ALEVE [Suspect]
     Indication: ANALGESIC EFFECT
     Dosage: SEE IMAGE
     Route: 048
     Dates: start: 20050221
  2. ALEVE [Suspect]
     Indication: CONTUSION
     Dosage: SEE IMAGE
     Route: 048
     Dates: start: 20050221
  3. ALEVE [Suspect]
     Indication: ANALGESIC EFFECT
     Dosage: SEE IMAGE
     Route: 048
     Dates: start: 20050222
  4. ALEVE [Suspect]
     Indication: CONTUSION
     Dosage: SEE IMAGE
     Route: 048
     Dates: start: 20050222
  5. ALEVE [Suspect]
     Indication: ANALGESIC EFFECT
     Dosage: SEE IMAGE
     Route: 048
     Dates: start: 20050223
  6. ALEVE [Suspect]
     Indication: CONTUSION
     Dosage: SEE IMAGE
     Route: 048
     Dates: start: 20050223
  7. SYNTHROID [Concomitant]
  8. ZETIA [Concomitant]

REACTIONS (11)
  - ANAL DISCOMFORT [None]
  - BURNING SENSATION [None]
  - EPISTAXIS [None]
  - HAEMORRHAGE [None]
  - NASAL DISCOMFORT [None]
  - NASAL DISORDER [None]
  - ORAL DISCOMFORT [None]
  - RASH MACULAR [None]
  - RECTAL HAEMORRHAGE [None]
  - SCAB [None]
  - STOMATITIS [None]
